FAERS Safety Report 13938040 (Version 1)
Quarter: 2017Q3

REPORT INFORMATION
  Report Type: Spontaneous
  Country: NL (occurrence: NL)
  Receive Date: 20170905
  Receipt Date: 20170905
  Transmission Date: 20171127
  Serious: Yes (Other)
  Sender: FDA-Public Use
  Company Number: NL-CASPER PHARMA LLC-2017SEB00402

PATIENT

DRUGS (2)
  1. THIOPRUINE [Suspect]
     Active Substance: UNSPECIFIED INGREDIENT
     Indication: INFLAMMATORY BOWEL DISEASE
     Route: 065
  2. ALLOPURINOL. [Suspect]
     Active Substance: ALLOPURINOL
     Indication: INFLAMMATORY BOWEL DISEASE
     Route: 065

REACTIONS (2)
  - Drug interaction [Unknown]
  - Nodular regenerative hyperplasia [Unknown]
